FAERS Safety Report 26052718 (Version 2)
Quarter: 2025Q4

REPORT INFORMATION
  Report Type: Spontaneous
  Country: US (occurrence: US)
  Receive Date: 20251117
  Receipt Date: 20251223
  Transmission Date: 20260117
  Serious: Yes (Hospitalization, Other)
  Sender: MYLAN
  Company Number: US-MYLANLABS-2025M1096638

PATIENT
  Sex: Female

DRUGS (4)
  1. GABAPENTIN [Suspect]
     Active Substance: GABAPENTIN
     Indication: Balance disorder
     Dosage: 600 MILLIGRAM, TID (THRICE DAILY)
     Dates: start: 2010
  2. GABAPENTIN [Suspect]
     Active Substance: GABAPENTIN
     Dosage: UNK
  3. GABAPENTIN [Suspect]
     Active Substance: GABAPENTIN
     Dosage: UNK
  4. REMICADE [Concomitant]
     Active Substance: INFLIXIMAB
     Dosage: UNK

REACTIONS (6)
  - Small intestinal obstruction [Unknown]
  - Withdrawal syndrome [Recovered/Resolved]
  - Drug dependence [Unknown]
  - Fall [Unknown]
  - Balance disorder [Unknown]
  - Product use in unapproved indication [Unknown]
